FAERS Safety Report 11537508 (Version 1)
Quarter: 2015Q3

REPORT INFORMATION
  Report Type: Spontaneous
  Country: ZA (occurrence: ZA)
  Receive Date: 20150922
  Receipt Date: 20150922
  Transmission Date: 20151125
  Serious: Yes (Other)
  Sender: FDA-Public Use
  Company Number: ZA-SA-2015SA143859

PATIENT
  Age: 82 Year

DRUGS (1)
  1. LANTUS [Suspect]
     Active Substance: INSULIN GLARGINE
     Route: 065
     Dates: start: 20150423

REACTIONS (2)
  - Colon cancer [Unknown]
  - Stent placement [Unknown]

NARRATIVE: CASE EVENT DATE: 2015
